FAERS Safety Report 5905422-5 (Version None)
Quarter: 2008Q4

REPORT INFORMATION
  Report Type: 
  Country: None (occurrence: None)
  Receive Date: 20081002
  Receipt Date: 20081001
  Transmission Date: 20090506
  Serious: Yes (Life-Threatening, Hospitalization)
  Sender: FDA-Public Use
  Company Number: PHEH1997US00467

PATIENT
  Sex: Male
  Weight: 98.6 kg

DRUGS (6)
  1. NEORAL [Suspect]
     Route: 048
     Dates: start: 19960509
  2. CARDURA [Concomitant]
  3. DYNACIRC [Concomitant]
  4. LASIX [Concomitant]
  5. VASOTEC [Concomitant]
  6. ASPIRIN [Concomitant]

REACTIONS (3)
  - CARDIAC ARREST [None]
  - CHEST PAIN [None]
  - DYSPNOEA [None]
